FAERS Safety Report 17306555 (Version 3)
Quarter: 2020Q1

REPORT INFORMATION
  Report Type: Spontaneous
  Country: US (occurrence: US)
  Receive Date: 20200123
  Receipt Date: 20200211
  Transmission Date: 20200409
  Serious: Yes (Hospitalization)
  Sender: FDA-Public Use
  Company Number: US-SAREPTA THERAPEUTICS INC.-SRP2020-000631

PATIENT
  Age: 20 Year
  Sex: Male

DRUGS (1)
  1. EXONDYS 51 [Suspect]
     Active Substance: ETEPLIRSEN
     Indication: DUCHENNE MUSCULAR DYSTROPHY
     Dosage: 2400 MG, WEEKLY
     Route: 042
     Dates: start: 201802

REACTIONS (3)
  - Post procedural complication [Recovered/Resolved]
  - Product dose omission [Unknown]
  - Volvulus [Unknown]

NARRATIVE: CASE EVENT DATE: 202001
